FAERS Safety Report 22609818 (Version 1)
Quarter: 2023Q2

REPORT INFORMATION
  Report Type: Spontaneous
  Country: CN (occurrence: CN)
  Receive Date: 20230616
  Receipt Date: 20230616
  Transmission Date: 20230722
  Serious: Yes (Death, Other)
  Sender: FDA-Public Use
  Company Number: CN-SUN PHARMACEUTICAL INDUSTRIES LTD-2023R1-394835

PATIENT
  Age: 78 Year
  Sex: Male

DRUGS (2)
  1. GEMCITABINE [Suspect]
     Active Substance: GEMCITABINE
     Indication: Chemotherapy
     Dosage: 1200 MILLIGRAM/FIRST DAY AND EIGHTH DAY
     Route: 042
  2. GIMERACIL\OTERACIL\TEGAFUR [Suspect]
     Active Substance: GIMERACIL\OTERACIL\OTERACIL POTASSIUM\TEGAFUR
     Indication: Chemotherapy
     Dosage: 80 MILLIGRAM, DAILY/FOR 14 CONSECUTIVE DAYS (3 WEEKS FOR A TREATMENT COURSE)
     Route: 048

REACTIONS (2)
  - Disease progression [Fatal]
  - Drug ineffective [Fatal]
